FAERS Safety Report 6997538-X (Version None)
Quarter: 2010Q3

REPORT INFORMATION
  Report Type: 
  Country: None (occurrence: None)
  Receive Date: 20100918
  Receipt Date: 20091102
  Transmission Date: 20110219
  Serious: No
  Sender: FDA-Public Use
  Company Number: US-WYE-H11990209

PATIENT
  Sex: Male

DRUGS (7)
  1. PRISTIQ [Suspect]
     Indication: DEPRESSION
     Route: 048
     Dates: start: 20091001
  2. LISINOPRIL [Concomitant]
  3. ALPRAZOLAM [Concomitant]
  4. CLARITIN [Concomitant]
  5. SINGULAIR [Concomitant]
  6. ASPIRIN [Concomitant]
  7. ATENOLOL [Concomitant]

REACTIONS (1)
  - RECTAL HAEMORRHAGE [None]
